FAERS Safety Report 4635196-X (Version None)
Quarter: 2005Q2

REPORT INFORMATION
  Report Type: 
  Country: None (occurrence: None)
  Receive Date: 20050414
  Receipt Date: 20050406
  Transmission Date: 20051028
  Serious: Yes (Hospitalization)
  Sender: FDA-Public Use
  Company Number: US-BOEHRINGER INGELHEIM PHARMACEUTICALS, INC.-2005-BP-05971BP

PATIENT
  Sex: Female

DRUGS (9)
  1. MOBIC [Suspect]
     Indication: OSTEOARTHRITIS
     Route: 048
  2. SCIO-469 BLINDED [Suspect]
     Indication: RHEUMATOID ARTHRITIS
     Route: 048
     Dates: start: 20041007, end: 20050320
  3. HYDROCHLOROTHIAZIDE [Concomitant]
  4. IMITREX [Concomitant]
     Indication: MIGRAINE
     Route: 058
  5. ZANTAC [Concomitant]
     Indication: GASTROOESOPHAGEAL REFLUX DISEASE
  6. OCUVITE [Concomitant]
     Indication: NUTRITIONAL SUPPORT
  7. MULTI-VITAMINS [Concomitant]
     Indication: NUTRITIONAL SUPPORT
  8. VITAMIN E [Concomitant]
     Indication: NUTRITIONAL SUPPORT
  9. NORVASC [Concomitant]
     Indication: MIGRAINE
     Route: 048

REACTIONS (3)
  - CLOSTRIDIUM COLITIS [None]
  - DRUG INTERACTION [None]
  - LOWER GASTROINTESTINAL HAEMORRHAGE [None]
